FAERS Safety Report 13617683 (Version 1)
Quarter: 2017Q2

REPORT INFORMATION
  Report Type: Spontaneous
  Country: US (occurrence: US)
  Receive Date: 20170606
  Receipt Date: 20170606
  Transmission Date: 20170830
  Serious: Yes (Other)
  Sender: FDA-Public Use
  Company Number: US-SA-2017SA009300

PATIENT
  Age: 40 Year
  Sex: Male

DRUGS (2)
  1. LANTUS SOLOSTAR [Suspect]
     Active Substance: INSULIN GLARGINE
     Indication: TYPE 1 DIABETES MELLITUS
     Dosage: DOSE:22 UNIT(S)
     Route: 065
  2. SOLOSTAR [Suspect]
     Active Substance: DEVICE
     Indication: TYPE 1 DIABETES MELLITUS

REACTIONS (9)
  - Pollakiuria [Unknown]
  - Gastrooesophageal reflux disease [Unknown]
  - Device issue [Unknown]
  - Ocular discomfort [Unknown]
  - Vision blurred [Unknown]
  - Retinopathy [Unknown]
  - Renal disorder [Unknown]
  - pH body fluid abnormal [Unknown]
  - Balance disorder [Unknown]
